FAERS Safety Report 5017678-4 (Version None)
Quarter: 2006Q2

REPORT INFORMATION
  Report Type: 
  Country: None (occurrence: None)
  Receive Date: 20060605
  Receipt Date: 20060524
  Transmission Date: 20061013
  Serious: Yes (Hospitalization, Disabling)
  Sender: FDA-Public Use
  Company Number: US-JNJFOC-20060105530

PATIENT
  Sex: Female
  Weight: 100.7 kg

DRUGS (20)
  1. REMICADE [Suspect]
     Route: 042
  2. REMICADE [Suspect]
     Route: 042
  3. REMICADE [Suspect]
     Route: 042
  4. REMICADE [Suspect]
     Route: 042
  5. REMICADE [Suspect]
     Route: 042
  6. REMICADE [Suspect]
     Route: 042
  7. REMICADE [Suspect]
     Route: 042
  8. REMICADE [Suspect]
     Route: 042
  9. REMICADE [Suspect]
     Indication: CROHN'S DISEASE
     Route: 042
  10. COLESTID [Concomitant]
     Indication: CROHN'S DISEASE
  11. MULTI-VITAMIN [Concomitant]
  12. MULTI-VITAMIN [Concomitant]
  13. MULTI-VITAMIN [Concomitant]
  14. MULTI-VITAMIN [Concomitant]
  15. MULTI-VITAMIN [Concomitant]
  16. MULTI-VITAMIN [Concomitant]
  17. MULTI-VITAMIN [Concomitant]
  18. MULTI-VITAMIN [Concomitant]
     Indication: CROHN'S DISEASE
  19. CALCIUM GLUCONATE [Concomitant]
     Indication: CROHN'S DISEASE
  20. B12 [Concomitant]
     Indication: CROHN'S DISEASE

REACTIONS (2)
  - COMA [None]
  - CONVULSION [None]
